FAERS Safety Report 7210392-6 (Version None)
Quarter: 2010Q4

REPORT INFORMATION
  Report Type: 
  Country: None (occurrence: None)
  Receive Date: 20101223
  Receipt Date: 20101213
  Transmission Date: 20110411
  Serious: Yes (Death)
  Sender: FDA-Public Use
  Company Number: 08-216

PATIENT
  Age: 47 Year
  Sex: Male

DRUGS (1)
  1. FAZACLO ODT [Suspect]
     Dosage: 400 MG DAILY PO
     Route: 048

REACTIONS (1)
  - ACCIDENTAL POISONING [None]
